FAERS Safety Report 26140713 (Version 1)
Quarter: 2025Q4

REPORT INFORMATION
  Report Type: Spontaneous
  Country: US (occurrence: US)
  Receive Date: 20251210
  Receipt Date: 20251210
  Transmission Date: 20260117
  Serious: No
  Sender: SANOFI AVENTIS
  Company Number: US-SA-2025SA367195

PATIENT
  Sex: Female

DRUGS (1)
  1. DUPIXENT [Suspect]
     Active Substance: DUPILUMAB
     Dosage: UNK

REACTIONS (5)
  - Vulvovaginal dryness [Unknown]
  - Vulvovaginal pain [Unknown]
  - Vulvovaginal discomfort [Unknown]
  - Vulvovaginal mycotic infection [Unknown]
  - Vulvovaginal rash [Unknown]
